FAERS Safety Report 12108727 (Version 2)
Quarter: 2018Q1

REPORT INFORMATION
  Report Type: Spontaneous
  Country: US (occurrence: US)
  Receive Date: 20160224
  Receipt Date: 20180301
  Transmission Date: 20180508
  Serious: Yes (Life-Threatening, Hospitalization, Other)
  Sender: FDA-Public Use
  Company Number: US-ASTRAZENECA-2016SE17764

PATIENT
  Age: 69 Year
  Sex: Female
  Weight: 90.3 kg

DRUGS (16)
  1. METOPROLOL SUCCINATE. [Suspect]
     Active Substance: METOPROLOL SUCCINATE
     Indication: CARDIAC DISORDER
     Route: 048
     Dates: start: 1990
  2. ISOSORBIDE MN ER [Concomitant]
     Active Substance: ISOSORBIDE
     Indication: CARDIAC DISORDER
     Route: 048
     Dates: start: 201511
  3. VITAMIN D3 [Concomitant]
     Active Substance: CHOLECALCIFEROL
     Route: 048
  4. ASPIRIN. [Concomitant]
     Active Substance: ASPIRIN
     Indication: ANTICOAGULANT THERAPY
     Route: 048
  5. LOVAZA [Concomitant]
     Active Substance: OMEGA-3-ACID ETHYL ESTERS
     Indication: BLOOD CHOLESTEROL
     Route: 048
  6. FOLIC ACID. [Concomitant]
     Active Substance: FOLIC ACID
     Route: 048
  7. ISOSORBIDE MN ER [Concomitant]
     Active Substance: ISOSORBIDE
     Indication: PERIPHERAL SWELLING
     Route: 048
     Dates: start: 201511
  8. CALCIUM [Concomitant]
     Active Substance: CALCIUM
     Indication: BONE DISORDER
     Route: 048
  9. CENTRUM SILVER [Concomitant]
     Active Substance: MINERALS\VITAMINS
     Dosage: 1 , DAILY
     Route: 048
  10. FLUTICASONE. [Concomitant]
     Active Substance: FLUTICASONE
     Indication: ILL-DEFINED DISORDER
     Route: 045
     Dates: start: 2014
  11. TUDORZA PRESSAIR [Suspect]
     Active Substance: ACLIDINIUM BROMIDE
     Indication: CHRONIC OBSTRUCTIVE PULMONARY DISEASE
     Dosage: 400 MCG, ONE PUFF TWICE A DAY
     Route: 055
     Dates: start: 2014
  12. POTASSIUM CITRATE. [Concomitant]
     Active Substance: POTASSIUM CITRATE
     Indication: NEPHROLITHIASIS
     Route: 048
     Dates: start: 1990
  13. ISOSORBIDE MN ER [Concomitant]
     Active Substance: ISOSORBIDE
     Indication: DYSPNOEA
     Route: 048
     Dates: start: 201511
  14. VITAMIN B12 [Concomitant]
     Active Substance: CYANOCOBALAMIN
     Route: 048
  15. IPRATROPIUM [Concomitant]
     Active Substance: IPRATROPIUM
     Indication: ILL-DEFINED DISORDER
     Dosage: 0.06 %, TWO TIMES A DAY
     Route: 045
     Dates: start: 2014
  16. LEVOTHYROXINE. [Concomitant]
     Active Substance: LEVOTHYROXINE
     Indication: THYROID DISORDER
     Route: 048

REACTIONS (15)
  - Myocardial infarction [Unknown]
  - Blood cholesterol abnormal [Unknown]
  - Drug dose omission [Unknown]
  - Coma [Unknown]
  - Nephrolithiasis [Unknown]
  - Skin cancer [Unknown]
  - Peripheral swelling [Unknown]
  - Myocardial oedema [Unknown]
  - Device malfunction [Unknown]
  - Enterococcal infection [Unknown]
  - Bacterial infection [Unknown]
  - Cardiac discomfort [Unknown]
  - Thyroid disorder [Unknown]
  - Chronic obstructive pulmonary disease [Unknown]
  - Bone disorder [Unknown]

NARRATIVE: CASE EVENT DATE: 1990
